FAERS Safety Report 8393116-9 (Version None)
Quarter: 2012Q2

REPORT INFORMATION
  Report Type: 
  Country: None (occurrence: None)
  Receive Date: 20120529
  Receipt Date: 20120427
  Transmission Date: 20120825
  Serious: No
  Sender: FDA-Public Use
  Company Number: US-ABBOTT-12P-163-0929983-00

PATIENT
  Sex: Male

DRUGS (3)
  1. ANDROGEL [Suspect]
     Dosage: 6 PUMP PRESSES DAILY
     Route: 061
     Dates: start: 20120201
  2. ANDROGEL [Suspect]
     Indication: BLOOD TESTOSTERONE DECREASED
     Dosage: 4 PUMP PRESSES DAILY
     Route: 061
     Dates: start: 20111101, end: 20120201
  3. ANDROGEL [Suspect]
     Indication: BLOOD TESTOSTERONE DECREASED
     Route: 061
     Dates: end: 20111101

REACTIONS (2)
  - BLOOD TESTOSTERONE ABNORMAL [None]
  - OEDEMA PERIPHERAL [None]
